FAERS Safety Report 12561639 (Version 1)
Quarter: 2016Q3

REPORT INFORMATION
  Report Type: Spontaneous
  Country: US (occurrence: US)
  Receive Date: 20160715
  Receipt Date: 20160715
  Transmission Date: 20161109
  Serious: No
  Sender: FDA-Public Use
  Company Number: US-IGSA-GTI003613

PATIENT
  Age: 55 Year
  Sex: Female
  Weight: 81 kg

DRUGS (13)
  1. RANITIDINE. [Concomitant]
     Active Substance: RANITIDINE
     Indication: GASTROOESOPHAGEAL REFLUX DISEASE
  2. QUETIAPINE. [Concomitant]
     Active Substance: QUETIAPINE
  3. LISINOPRIL/HCTZ [Concomitant]
     Active Substance: HYDROCHLOROTHIAZIDE\LISINOPRIL
     Indication: HYPERTENSION
  4. GAMUNEX-C [Suspect]
     Active Substance: HUMAN IMMUNOGLOBULIN G
     Indication: IMMUNODEFICIENCY COMMON VARIABLE
     Route: 058
     Dates: start: 20141211, end: 20151019
  5. VENTOLIN [Concomitant]
     Active Substance: ALBUTEROL SULFATE
     Indication: ASTHMA
  6. ZYRTEC [Concomitant]
     Active Substance: CETIRIZINE HYDROCHLORIDE
     Indication: HYPERSENSITIVITY
  7. BENADRYL [Concomitant]
     Active Substance: DIPHENHYDRAMINE HYDROCHLORIDE
  8. VERAMYST [Concomitant]
     Active Substance: FLUTICASONE FUROATE
     Indication: HYPERSENSITIVITY
  9. CYCLOBENZAPRINE [Concomitant]
     Active Substance: CYCLOBENZAPRINE
     Indication: FIBROMYALGIA
  10. GAMUNEX-C [Suspect]
     Active Substance: HUMAN IMMUNOGLOBULIN G
     Indication: IMMUNODEFICIENCY COMMON VARIABLE
     Route: 058
     Dates: start: 20141211, end: 20151019
  11. LITHIUM. [Concomitant]
     Active Substance: LITHIUM
  12. FLOVENT [Concomitant]
     Active Substance: FLUTICASONE PROPIONATE
     Indication: ASTHMA
  13. OXCARBAZEPINE. [Concomitant]
     Active Substance: OXCARBAZEPINE

REACTIONS (2)
  - Injection site reaction [Unknown]
  - Headache [Unknown]

NARRATIVE: CASE EVENT DATE: 20141211
